FAERS Safety Report 17656342 (Version 1)
Quarter: 2020Q2

REPORT INFORMATION
  Report Type: Spontaneous
  Country: US (occurrence: US)
  Receive Date: 20200410
  Receipt Date: 20200410
  Transmission Date: 20200713
  Serious: Yes (Other)
  Sender: FDA-Public Use
  Company Number: US-GILEAD-2020-0458266

PATIENT
  Age: 55 Year
  Sex: Male

DRUGS (4)
  1. ZETIA [Concomitant]
     Active Substance: EZETIMIBE
  2. COREG [Concomitant]
     Active Substance: CARVEDILOL
  3. ATRIPLA [Suspect]
     Active Substance: EFAVIRENZ\EMTRICITABINE\TENOFOVIR DISOPROXIL FUMARATE
     Indication: PRODUCT USED FOR UNKNOWN INDICATION
     Dosage: UNK
     Route: 065
     Dates: start: 200507
  4. FISH OIL [Concomitant]
     Active Substance: FISH OIL

REACTIONS (16)
  - Cardiac failure acute [Unknown]
  - Unevaluable event [Unknown]
  - Hodgkin^s disease [Unknown]
  - Bone density abnormal [Unknown]
  - Lymphadenopathy [Unknown]
  - Dyslipidaemia [Unknown]
  - Limb injury [Unknown]
  - Myocardial infarction [Unknown]
  - Localised infection [Recovered/Resolved]
  - Scar [Unknown]
  - Eye infection [Unknown]
  - Corneal scar [Unknown]
  - Hypertension [Unknown]
  - Peripheral swelling [Recovered/Resolved]
  - Pruritus [Unknown]
  - Gait disturbance [Recovered/Resolved]

NARRATIVE: CASE EVENT DATE: 2005
